FAERS Safety Report 6951939-4 (Version None)
Quarter: 2010Q3

REPORT INFORMATION
  Report Type: 
  Country: None (occurrence: None)
  Receive Date: 20100829
  Receipt Date: 20100415
  Transmission Date: 20110219
  Serious: No
  Sender: FDA-Public Use
  Company Number: US-ABBOTT-10P-163-0639572-00

PATIENT
  Sex: Male

DRUGS (5)
  1. NIASPAN [Suspect]
     Indication: BLOOD TRIGLYCERIDES INCREASED
     Dates: start: 20020101
  2. ZOCOR [Suspect]
     Indication: BLOOD TRIGLYCERIDES INCREASED
     Dates: start: 20091001, end: 20091001
  3. PRAVACHOL [Concomitant]
     Indication: BLOOD TRIGLYCERIDES INCREASED
     Dates: start: 20091001
  4. GLIPIZIDE [Concomitant]
     Indication: DIABETES MELLITUS
  5. DIOVAN [Concomitant]
     Indication: HYPERTENSION

REACTIONS (4)
  - ABDOMINAL PAIN [None]
  - ASTHENIA [None]
  - MELAENA [None]
  - MUSCULAR WEAKNESS [None]
